FAERS Safety Report 8968440 (Version 1)
Quarter: 2012Q4

REPORT INFORMATION
  Report Type: Spontaneous
  Country: DE (occurrence: None)
  Receive Date: 20121207
  Receipt Date: 20121207
  Transmission Date: 20130627
  Serious: Yes (Other)
  Sender: FDA-Public Use
  Company Number: GER/GER/12/0026833

PATIENT
  Age: 83 Year
  Sex: Male
  Weight: 58 kg

DRUGS (5)
  1. SIMVASTATIN (SIMVASTATIN) [Suspect]
     Indication: MYOCARDIAL INFARCTION
     Route: 048
     Dates: start: 201202
  2. ASS [Suspect]
     Indication: MYOCARDIAL INFARCTION
     Route: 048
     Dates: start: 201202
  3. BRILIQUE [Suspect]
     Indication: MYOCARDIAL INFARCTION
     Route: 048
     Dates: start: 201202
  4. METOPROLOL (METOPROLOL) [Concomitant]
  5. DELIX (RAMIPRIL) [Concomitant]

REACTIONS (5)
  - Subdural haematoma [None]
  - Speech disorder [None]
  - Hemiparesis [None]
  - Gait disturbance [None]
  - Fall [None]
